FAERS Safety Report 23788345 (Version 1)
Quarter: 2024Q2

REPORT INFORMATION
  Report Type: Spontaneous
  Country: US (occurrence: None)
  Receive Date: 20240425
  Receipt Date: 20240425
  Transmission Date: 20240717
  Serious: Yes (Hospitalization)
  Sender: FDA-Public Use
  Company Number: None

PATIENT
  Age: 71 Year
  Sex: Male

DRUGS (1)
  1. ZONISAMIDE [Suspect]
     Active Substance: ZONISAMIDE
     Indication: Tremor
     Dosage: 25 MG EVERY DAY PO?
     Route: 048
     Dates: start: 20230328, end: 20230501

REACTIONS (4)
  - Anaphylactic reaction [None]
  - Urticaria [None]
  - Throat tightness [None]
  - Hypersensitivity [None]

NARRATIVE: CASE EVENT DATE: 20230501
